FAERS Safety Report 10057935 (Version 1)
Quarter: 2014Q2

REPORT INFORMATION
  Report Type: Spontaneous
  Country: GB (occurrence: None)
  Receive Date: 20140402
  Receipt Date: 20140402
  Transmission Date: 20141212
  Serious: Yes (Other)
  Sender: FDA-Public Use
  Company Number: AUR-APL-2014-03692

PATIENT
  Age: 44 Year
  Sex: Female
  Weight: 120 kg

DRUGS (6)
  1. AMLODIPINE (AMLODIPINE) [Suspect]
     Indication: HYPERTENSION
     Route: 048
     Dates: start: 201306, end: 201403
  2. BACLOFEN [Concomitant]
  3. GAVISCON ADVANCE [Concomitant]
  4. LANSOPRAZOLE [Concomitant]
  5. LOSARTAN POTASSIUM [Concomitant]
  6. MONTELUKAST [Concomitant]

REACTIONS (7)
  - Oedema [None]
  - Skin discolouration [None]
  - Rash erythematous [None]
  - Peripheral swelling [None]
  - Paraesthesia [None]
  - Feeling hot [None]
  - Mobility decreased [None]
